FAERS Safety Report 18087840 (Version 1)
Quarter: 2020Q3

REPORT INFORMATION
  Report Type: Spontaneous
  Country: US (occurrence: US)
  Receive Date: 20200729
  Receipt Date: 20200729
  Transmission Date: 20201103
  Serious: Yes (Hospitalization, Other)
  Sender: FDA-Public Use
  Company Number: US-RECKITT BENCKISER HEALTHCARE INT LIMITED-RB-90499-2020

PATIENT
  Sex: Female

DRUGS (2)
  1. MUCINEX [Suspect]
     Active Substance: GUAIFENESIN
     Indication: PRODUCT USED FOR UNKNOWN INDICATION
     Dosage: UNK
     Route: 065
  2. OFEV [Suspect]
     Active Substance: NINTEDANIB
     Indication: IDIOPATHIC PULMONARY FIBROSIS
     Dosage: UNK
     Route: 065

REACTIONS (14)
  - Respiratory tract congestion [Unknown]
  - Tooth infection [Unknown]
  - Feeling abnormal [Not Recovered/Not Resolved]
  - Hypersensitivity [Unknown]
  - Asthenia [Not Recovered/Not Resolved]
  - Pain in extremity [Unknown]
  - Lung disorder [Unknown]
  - Insomnia [Unknown]
  - Tooth abscess [Unknown]
  - Anxiety [Unknown]
  - Dizziness [Unknown]
  - Stomatitis [Unknown]
  - Somnolence [Unknown]
  - Productive cough [Unknown]
